FAERS Safety Report 16095337 (Version 5)
Quarter: 2020Q1

REPORT INFORMATION
  Report Type: Other
  Country: CA (occurrence: CA)
  Receive Date: 20190320
  Receipt Date: 20200217
  Transmission Date: 20200409
  Serious: Yes (Other)
  Sender: FDA-Public Use
  Company Number: CA-BECTON DICKINSON-2019BDN00106

PATIENT
  Age: 27 Year
  Sex: Female

DRUGS (40)
  1. METHYLDOPA. [Suspect]
     Active Substance: METHYLDOPA
     Indication: HYPERTENSION
     Route: 048
  2. NIFEDIPINE. [Suspect]
     Active Substance: NIFEDIPINE
     Indication: HYPERTENSION
     Dosage: 20 MG, 2 EVERY 1 DAY(S)
  3. SILDENAFIL. [Suspect]
     Active Substance: SILDENAFIL
     Dosage: UNK
  4. SILDENAFIL. [Suspect]
     Active Substance: SILDENAFIL
     Dosage: 80 MG, 1X/DAY
     Route: 048
  5. CHLORHEXIDINE [Suspect]
     Active Substance: CHLORHEXIDINE
     Indication: GINGIVAL HYPERTROPHY
  6. CHLORHEXIDINE GLUCONATE ORAL RINSE [Suspect]
     Active Substance: CHLORHEXIDINE GLUCONATE
     Indication: GINGIVAL HYPERTROPHY
  7. DEXPANTHENOL/ERGOCALCIFEROL/FOLIC ACID/NICOTINAMIDE/RIBOFLAVIN/THIAMIN [Suspect]
     Active Substance: VITAMINS
     Indication: PROPHYLAXIS
  8. DICLECTIN [Suspect]
     Active Substance: DOXYLAMINE SUCCINATE\PYRIDOXINE HYDROCHLORIDE
     Indication: PROPHYLAXIS
     Route: 048
  9. INSULIN [Suspect]
     Active Substance: INSULIN NOS
     Indication: TYPE 2 DIABETES MELLITUS
     Route: 048
  10. MULTIVITAMINE(S) [Suspect]
     Active Substance: VITAMINS
     Indication: PROPHYLAXIS
  11. NIFEDIPINE. [Suspect]
     Active Substance: NIFEDIPINE
     Dosage: 20 MG, 1X/DAY
  12. NIFEDIPINE. [Suspect]
     Active Substance: NIFEDIPINE
     Dosage: 20 MG, 1X/DAY
     Route: 048
  13. SILDENAFIL. [Suspect]
     Active Substance: SILDENAFIL
     Dosage: 60, 1X/DAY
  14. SILDENAFIL. [Suspect]
     Active Substance: SILDENAFIL
     Dosage: 20 MG, 1 EVERY 8 HOUR(S)
     Route: 048
  15. SILDENAFIL. [Suspect]
     Active Substance: SILDENAFIL
     Dosage: UNK, 1 EVERY 6 HOURS
  16. NIFEDIPINE. [Suspect]
     Active Substance: NIFEDIPINE
     Dosage: 60 MG, 2 EVERY 1 DAY(S)
  17. SILDENAFIL. [Suspect]
     Active Substance: SILDENAFIL
     Dosage: 20 MG, 3 EVERY 1 DAY(S)
  18. NIFEDIPINE. [Suspect]
     Active Substance: NIFEDIPINE
     Dosage: 60 MG, 1X/DAY
     Route: 023
  19. SILDENAFIL. [Suspect]
     Active Substance: SILDENAFIL
     Dosage: 20 MG, 2 EVERY 1 DAY(S)
  20. APO-SILDENAFIL [Suspect]
     Active Substance: SILDENAFIL
     Indication: FOETAL GROWTH RESTRICTION
     Dosage: 20 MG, 2X/DAY
  21. ERGOCALCIFEROL. [Suspect]
     Active Substance: ERGOCALCIFEROL
     Indication: PROPHYLAXIS
  22. METHYLDOPA. [Suspect]
     Active Substance: METHYLDOPA
     Dosage: UNK
  23. NIFEDIPINE. [Suspect]
     Active Substance: NIFEDIPINE
     Dosage: 40 MG, 1X/DAY
  24. NIFEDIPINE. [Suspect]
     Active Substance: NIFEDIPINE
     Dosage: 120 MG, 1X/DAY
  25. NIFEDIPINE. [Suspect]
     Active Substance: NIFEDIPINE
     Indication: HYPERTENSION
     Dosage: 20 MG, 3 EVERY 1 DAY(S)
     Route: 023
  26. SILDENAFIL. [Suspect]
     Active Substance: SILDENAFIL
     Dosage: 20 MG, 1 EVERY 6 HOUR(S) (^4 EVERY 1 DAYS^)
     Route: 048
  27. SILDENAFIL. [Suspect]
     Active Substance: SILDENAFIL
     Dosage: 20 MG
     Route: 048
  28. METFORMIN [Suspect]
     Active Substance: METFORMIN HYDROCHLORIDE
     Indication: TYPE 2 DIABETES MELLITUS
  29. NIFEDIPINE. [Suspect]
     Active Substance: NIFEDIPINE
     Dosage: 20 MG, 2 EVERY 1 DAY(S)
  30. SILDENAFIL. [Suspect]
     Active Substance: SILDENAFIL
     Dosage: 20 MG, 3 EVERY 1 DAY(S)
     Route: 048
  31. SILDENAFIL. [Suspect]
     Active Substance: SILDENAFIL
     Dosage: 20 MG, 6 EVERY 1 HOUR(S)
     Route: 048
  32. ACETYLSALICYLIC ACID (ASA) [Suspect]
     Active Substance: ASPIRIN
     Indication: PROPHYLAXIS
  33. APO-SILDENAFIL [Suspect]
     Active Substance: SILDENAFIL
     Dosage: 20 MG, 3X/DAY
  34. APO-SILDENAFIL [Suspect]
     Active Substance: SILDENAFIL
     Dosage: 20 MG, 4X/DAY
  35. ASPIRIN. [Suspect]
     Active Substance: ASPIRIN
  36. NIFEDIPINE. [Suspect]
     Active Substance: NIFEDIPINE
     Dosage: 20 MG
     Route: 048
  37. NIFEDIPINE. [Suspect]
     Active Substance: NIFEDIPINE
     Dosage: UNK
  38. SILDENAFIL. [Suspect]
     Active Substance: SILDENAFIL
     Indication: FOETAL GROWTH RESTRICTION
     Dosage: 20 MG, 1X/DAY
     Route: 048
  39. SILDENAFIL. [Suspect]
     Active Substance: SILDENAFIL
     Dosage: 20 MG, 1 EVERY 6 HOUR(S)
     Route: 048
  40. SILDENAFIL. [Suspect]
     Active Substance: SILDENAFIL
     Dosage: 40 MG, 1X/DAY

REACTIONS (3)
  - Off label use [Unknown]
  - Maternal exposure during pregnancy [Recovered/Resolved]
  - Premature delivery [Unknown]
